FAERS Safety Report 23068869 (Version 1)
Quarter: 2023Q4

REPORT INFORMATION
  Report Type: Spontaneous
  Country: US (occurrence: US)
  Receive Date: 20231016
  Receipt Date: 20231016
  Transmission Date: 20240109
  Serious: Yes (Other)
  Sender: FDA-Public Use
  Company Number: US-SANOFI-01797398

PATIENT
  Sex: Male

DRUGS (2)
  1. CEREZYME [Suspect]
     Active Substance: IMIGLUCERASE
     Dosage: UNK
     Route: 065
  2. EPIPEN [Concomitant]
     Active Substance: EPINEPHRINE
     Indication: Premedication
     Dosage: UNK

REACTIONS (1)
  - Anaphylactic reaction [Unknown]
